FAERS Safety Report 20874870 (Version 2)
Quarter: 2022Q2

REPORT INFORMATION
  Report Type: Spontaneous
  Country: GR (occurrence: GR)
  Receive Date: 20220526
  Receipt Date: 20220609
  Transmission Date: 20220721
  Serious: Yes (Death, Hospitalization)
  Sender: FDA-Public Use
  Company Number: GR-TEVA-2022-GR-2039283

PATIENT
  Age: 59 Year
  Sex: Male

DRUGS (10)
  1. MIRTAZAPINE [Suspect]
     Active Substance: MIRTAZAPINE
     Indication: Progressive multifocal leukoencephalopathy
     Dosage: 60 MILLIGRAM DAILY;
     Route: 065
  2. RITUXIMAB [Suspect]
     Active Substance: RITUXIMAB
     Indication: Follicular lymphoma stage III
     Dosage: ADMINISTERED 8 CYCLES UNDER THE R-CHOP CHEMOTHERAPY REGIMEN
     Route: 065
  3. RITUXIMAB [Suspect]
     Active Substance: RITUXIMAB
     Dosage: ADMINISTERED EVERY 2 MONTHS AS MAINTENANCE THERAPY
     Route: 065
  4. OBINUTUZUMAB [Suspect]
     Active Substance: OBINUTUZUMAB
     Indication: Follicular lymphoma stage III
     Dosage: ADMINISTERED TOTAL 6 CYCLES
     Route: 065
  5. NIVOLUMAB [Suspect]
     Active Substance: NIVOLUMAB
     Indication: Progressive multifocal leukoencephalopathy
     Dosage: RECEIVED 4 CYCLES
     Route: 042
  6. CYCLOPHOSPHAMIDE [Concomitant]
     Active Substance: CYCLOPHOSPHAMIDE
     Indication: Follicular lymphoma stage III
     Dosage: ADMINISTERED 8 CYCLES UNDER THE R-CHOP CHEMOTHERAPY REGIMEN
     Route: 065
  7. DOXORUBICIN [Concomitant]
     Active Substance: DOXORUBICIN
     Indication: Follicular lymphoma stage III
     Dosage: ADMINISTERED 8 CYCLES UNDER THE R-CHOP CHEMOTHERAPY REGIMEN
     Route: 065
  8. VINCRISTINE [Concomitant]
     Active Substance: VINCRISTINE
     Indication: Follicular lymphoma stage III
     Dosage: ADMINISTERED 8 CYCLES UNDER THE R-CHOP CHEMOTHERAPY REGIMEN
     Route: 065
  9. PREDNISONE [Concomitant]
     Active Substance: PREDNISONE
     Indication: Follicular lymphoma stage III
     Dosage: ADMINISTERED 8 CYCLES UNDER THE R-CHOP CHEMOTHERAPY REGIMEN
     Route: 065
  10. BENDAMUSTINE [Concomitant]
     Active Substance: BENDAMUSTINE
     Indication: Follicular lymphoma stage III
     Dosage: ADMINISTERED TOTAL 6 CYCLES
     Route: 065

REACTIONS (5)
  - Progressive multifocal leukoencephalopathy [Fatal]
  - Quadriparesis [Fatal]
  - Aphasia [Fatal]
  - Coma [Fatal]
  - Drug ineffective [Unknown]
